FAERS Safety Report 7006195-8 (Version None)
Quarter: 2010Q3

REPORT INFORMATION
  Report Type: 
  Country: None (occurrence: None)
  Receive Date: 20100921
  Receipt Date: 20100908
  Transmission Date: 20110219
  Serious: No
  Sender: FDA-Public Use
  Company Number: US-PFIZER INC-2010095878

PATIENT
  Sex: Male

DRUGS (1)
  1. DILANTIN [Suspect]
     Dosage: 30 MG, UNK
     Route: 048

REACTIONS (1)
  - MALAISE [None]
